FAERS Safety Report 4505170-2 (Version None)
Quarter: 2004Q4

REPORT INFORMATION
  Report Type: 
  Country: None (occurrence: None)
  Receive Date: 20041018
  Receipt Date: 20040628
  Transmission Date: 20050328
  Serious: Yes (Other)
  Sender: FDA-Public Use
  Company Number: 2003119224

PATIENT
  Sex: 0

DRUGS (4)
  1. GEODON [Suspect]
     Dosage: 10 MG, INTRAMUSCULAR
     Route: 030
  2. TRAZODONE HCL [Concomitant]
  3. COCAINE (COCAINE) [Concomitant]
  4. LORAZEPAM [Concomitant]

REACTIONS (1)
  - HYPOTENSION [None]
